FAERS Safety Report 5703047-8 (Version None)
Quarter: 2008Q2

REPORT INFORMATION
  Report Type: 
  Country: None (occurrence: None)
  Receive Date: 20080411
  Receipt Date: 20080331
  Transmission Date: 20081010
  Serious: Yes (Other)
  Sender: FDA-Public Use
  Company Number: US-ELI_LILLY_AND_COMPANY-US200803006826

PATIENT
  Age: 70 Year
  Sex: Female

DRUGS (6)
  1. CYMBALTA [Suspect]
     Indication: NEURALGIA
     Dosage: UNK, UNK
     Dates: start: 20050101
  2. CYMBALTA [Suspect]
     Dosage: 60 MG, UNK
     Dates: start: 20080101, end: 20080101
  3. CYMBALTA [Suspect]
     Dosage: 90 MG, UNK
     Dates: start: 20080101, end: 20080301
  4. CYMBALTA [Suspect]
     Dosage: 60 MG, UNK
     Dates: start: 20080301
  5. FOSAMAX [Concomitant]
  6. CARBAMAZEPINE [Concomitant]
     Dosage: 200 MG, UNK

REACTIONS (5)
  - ALOPECIA [None]
  - BLOOD PRESSURE SYSTOLIC INCREASED [None]
  - DRUG INEFFECTIVE [None]
  - RESTLESS LEGS SYNDROME [None]
  - SLEEP DISORDER [None]
